FAERS Safety Report 4752107-7 (Version None)
Quarter: 2005Q3

REPORT INFORMATION
  Report Type: 
  Country: None (occurrence: None)
  Receive Date: 20050825
  Receipt Date: 20050728
  Transmission Date: 20060218
  Serious: Yes (Life-Threatening)
  Sender: FDA-Public Use
  Company Number: 2005AP04109

PATIENT
  Age: 17106 Day
  Sex: Male
  Weight: 79.6 kg

DRUGS (4)
  1. CARBOCAIN AMPOULE [Suspect]
     Indication: INFILTRATION ANAESTHESIA
     Dosage: INJECTION TEST
     Route: 058
     Dates: start: 20050708, end: 20050708
  2. CARBOCAIN AMPOULE [Suspect]
     Route: 058
     Dates: start: 20050708, end: 20050708
  3. NEO-PERCAMIN-S [Suspect]
     Indication: SPINAL ANAESTHESIA
     Dosage: INJECTION TEST
     Route: 058
     Dates: start: 20050708, end: 20050708
  4. NEO-PERCAMIN-S [Suspect]
     Route: 008
     Dates: start: 20050708, end: 20050708

REACTIONS (1)
  - SHOCK [None]
